FAERS Safety Report 9228452 (Version 1)
Quarter: 2013Q2

REPORT INFORMATION
  Report Type: Spontaneous
  Country: US (occurrence: None)
  Receive Date: 20130411
  Receipt Date: 20130411
  Transmission Date: 20140414
  Serious: Yes (Life-Threatening)
  Sender: FDA-Public Use
  Company Number: None

PATIENT
  Age: 56 Year
  Sex: Female
  Weight: 77.11 kg

DRUGS (1)
  1. SCARPRIN [Suspect]
     Indication: SCAR
     Dosage: APPLY THIN LAYER OVER SCAR  TWICE DAILY  TOP
     Route: 061
     Dates: start: 20130228, end: 20130306

REACTIONS (2)
  - Application site vesicles [None]
  - Streptococcal bacteraemia [None]
